FAERS Safety Report 6671882-8 (Version None)
Quarter: 2010Q2

REPORT INFORMATION
  Report Type: 
  Country: None (occurrence: None)
  Receive Date: 20100407
  Receipt Date: 20100326
  Transmission Date: 20101027
  Serious: Yes (Other)
  Sender: FDA-Public Use
  Company Number: US-PFIZER INC-2010040008

PATIENT
  Sex: Male
  Weight: 72.562 kg

DRUGS (3)
  1. VARENICLINE TARTRATE [Suspect]
     Indication: SMOKING CESSATION THERAPY
     Dosage: 0.5 MG, 1X/DAY
     Route: 048
     Dates: start: 20100202, end: 20100323
  2. DEPAKOTE [Concomitant]
     Indication: ALCOHOLISM
     Dosage: UNK
  3. ESCITALOPRAM [Concomitant]
     Dosage: UNK

REACTIONS (6)
  - ANGER [None]
  - INSOMNIA [None]
  - INTERMITTENT EXPLOSIVE DISORDER [None]
  - PERSONALITY CHANGE [None]
  - PERSONALITY DISORDER [None]
  - VOMITING [None]
